FAERS Safety Report 5809788-6 (Version None)
Quarter: 2008Q3

REPORT INFORMATION
  Report Type: 
  Country: None (occurrence: None)
  Receive Date: 20080715
  Receipt Date: 20080707
  Transmission Date: 20090109
  Serious: Yes (Other)
  Sender: FDA-Public Use
  Company Number: US-AVENTIS-200814181US

PATIENT
  Age: 7 Year
  Sex: Male

DRUGS (2)
  1. DDAVP [Suspect]
     Dosage: DOSE: ONE SPRAY IN EACH NOSTRIL
  2. HYDROCHLOROTHIAZIDE [Concomitant]
     Dosage: DOSE: UNK

REACTIONS (2)
  - COLITIS ULCERATIVE [None]
  - HAEMORRHAGE [None]
